FAERS Safety Report 25058491 (Version 2)
Quarter: 2025Q1

REPORT INFORMATION
  Report Type: Spontaneous
  Country: IL (occurrence: IL)
  Receive Date: 20250310
  Receipt Date: 20250320
  Transmission Date: 20250409
  Serious: Yes (Death, Other)
  Sender: PFIZER
  Company Number: IL-PFIZER INC-PV202500028099

PATIENT
  Age: 77 Year
  Sex: Female

DRUGS (3)
  1. TRAZIMERA [Suspect]
     Active Substance: TRASTUZUMAB-QYYP
     Indication: Breast cancer metastatic
     Dates: start: 20250224
  2. PERJETA [Concomitant]
     Active Substance: PERTUZUMAB
     Dates: start: 20250224
  3. NAVELBINE [Concomitant]
     Active Substance: VINORELBINE TARTRATE
     Dates: start: 20250224

REACTIONS (3)
  - Anaphylactic shock [Fatal]
  - Acute respiratory distress syndrome [Fatal]
  - Renal impairment [Unknown]

NARRATIVE: CASE EVENT DATE: 20250201
